FAERS Safety Report 18603845 (Version 2)
Quarter: 2020Q4

REPORT INFORMATION
  Report Type: Spontaneous
  Country: CN (occurrence: CN)
  Receive Date: 20201211
  Receipt Date: 20201225
  Transmission Date: 20210114
  Serious: Yes (Hospitalization, Other)
  Sender: FDA-Public Use
  Company Number: CN-LUPIN PHARMACEUTICALS INC.-2020-10133

PATIENT
  Age: 8 Year
  Sex: Female

DRUGS (10)
  1. VINCRISTINE [Concomitant]
     Active Substance: VINCRISTINE
     Indication: PROPHYLAXIS
     Dosage: 1.5 MILLIGRAM/SQ. METER, QD
     Route: 065
  2. GLUCOSE [Concomitant]
     Active Substance: DEXTROSE
     Indication: PRODUCT USED FOR UNKNOWN INDICATION
     Dosage: 50 MILLILITER
     Route: 065
  3. VANCOMYCIN [Suspect]
     Active Substance: VANCOMYCIN
     Indication: INFECTION
     Dosage: 250 MILLIGRAM
     Route: 065
  4. CEFOPERAZONE SODIUM;SULBACTAM [Suspect]
     Active Substance: CEFOPERAZONE SODIUM\SULBACTAM
     Indication: INFECTION
     Dosage: 0.95 GRAM
     Route: 065
  5. SODIUM CHLORIDE. [Concomitant]
     Active Substance: SODIUM CHLORIDE
     Indication: PRODUCT USED FOR UNKNOWN INDICATION
     Dosage: 100 MILLILITER
     Route: 065
  6. MESNA. [Concomitant]
     Active Substance: MESNA
     Indication: DRUG THERAPY
     Dosage: UNK
     Route: 065
  7. 6-MERCAPTOPURINE MONOHYDRATE [Concomitant]
     Active Substance: MERCAPTOPURINE
     Indication: ACUTE LYMPHOCYTIC LEUKAEMIA
     Dosage: 50 MILLIGRAM/SQ. METER, QD
     Route: 048
  8. ONDANSETRON [Concomitant]
     Active Substance: ONDANSETRON
     Indication: PROPHYLAXIS OF NAUSEA AND VOMITING
     Dosage: UNK
     Route: 065
  9. DEXAMETHASONE. [Concomitant]
     Active Substance: DEXAMETHASONE
     Indication: PROPHYLAXIS
     Dosage: 6 MILLIGRAM/SQ. METER, QD
     Route: 048
  10. METHOTREXATE. [Concomitant]
     Active Substance: METHOTREXATE
     Indication: ACUTE LYMPHOCYTIC LEUKAEMIA
     Dosage: 20 MILLIGRAM/SQ. METER (20 MG/M2/DAY ONCE WEEKLY [SIC])
     Route: 030

REACTIONS (1)
  - Drug ineffective [Unknown]
